FAERS Safety Report 9908218 (Version 2)
Quarter: 2014Q1

REPORT INFORMATION
  Report Type: Spontaneous
  Country: FI (occurrence: FI)
  Receive Date: 20140219
  Receipt Date: 20140317
  Transmission Date: 20141002
  Serious: Yes (Other)
  Sender: FDA-Public Use
  Company Number: FI-AMGEN-FINSP2014010650

PATIENT
  Age: 57 Year
  Sex: Female

DRUGS (2)
  1. MIMPARA [Suspect]
     Indication: PRODUCT USED FOR UNKNOWN INDICATION
     Dosage: UNK
     Route: 065
     Dates: start: 201208
  2. FEMAR [Interacting]
     Dosage: UNK
     Route: 065
     Dates: start: 201201

REACTIONS (3)
  - Drug interaction [Unknown]
  - Drug effect decreased [Unknown]
  - Carbohydrate antigen 15-3 increased [Unknown]
